FAERS Safety Report 12689915 (Version 1)
Quarter: 2016Q3

REPORT INFORMATION
  Report Type: Spontaneous
  Country: DK (occurrence: DK)
  Receive Date: 20160826
  Receipt Date: 20160826
  Transmission Date: 20161109
  Serious: Yes (Life-Threatening, Hospitalization, Disabling, Other)
  Sender: FDA-Public Use
  Company Number: DK-TEVA-685940ACC

PATIENT
  Age: 28 Year
  Sex: Male

DRUGS (5)
  1. QUETIAPIN ^ACCORD^ [Suspect]
     Active Substance: QUETIAPINE
     Indication: MENTAL DISORDER
     Dosage: 50 MILLIGRAM DAILY; SINGLE DOSE
     Route: 048
     Dates: start: 20160725, end: 20160725
  2. RIVOTRIL [Concomitant]
     Active Substance: CLONAZEPAM
     Dosage: 6 MILLIGRAM DAILY;
     Dates: start: 20160725
  3. STESOLID [Suspect]
     Active Substance: DIAZEPAM
     Indication: SEDATIVE THERAPY
     Dosage: 20 MILLIGRAM DAILY;
     Route: 030
     Dates: start: 20160725, end: 20160726
  4. METADON ^DAK^ [Suspect]
     Active Substance: METHADONE HYDROCHLORIDE
     Indication: DRUG ABUSE
     Dosage: 80 MILLIGRAM DAILY;
     Route: 048
  5. RITALIN [Concomitant]
     Active Substance: METHYLPHENIDATE HYDROCHLORIDE
     Dosage: 80 MILLIGRAM DAILY;
     Dates: start: 20160725

REACTIONS (7)
  - Cardiac arrest [Recovered/Resolved]
  - Skin discolouration [Recovered/Resolved]
  - Respiratory arrest [Recovered/Resolved]
  - Arm amputation [Not Recovered/Not Resolved]
  - Compartment syndrome [Recovered/Resolved with Sequelae]
  - Depressed level of consciousness [Recovered/Resolved]
  - Endotracheal intubation [Recovered/Resolved]

NARRATIVE: CASE EVENT DATE: 2016
